FAERS Safety Report 7425766-8 (Version None)
Quarter: 2011Q2

REPORT INFORMATION
  Report Type: 
  Country: None (occurrence: None)
  Receive Date: 20110420
  Receipt Date: 20101004
  Transmission Date: 20111010
  Serious: Yes (Other)
  Sender: FDA-Public Use
  Company Number: US-JNJFOC-20101001252

PATIENT
  Sex: Female
  Weight: 88.45 kg

DRUGS (17)
  1. ORAL CONTRACEPTIVE [Concomitant]
     Route: 048
  2. IRON [Concomitant]
     Route: 065
  3. ACETAMINOPHEN [Concomitant]
     Indication: PREMEDICATION
  4. PAXIL [Concomitant]
  5. METHOTREXATE [Concomitant]
  6. VITAMIN D [Concomitant]
     Route: 065
  7. FOLIC ACID [Concomitant]
     Route: 065
  8. ASCORBIC ACID [Concomitant]
  9. TRAZODONE [Concomitant]
     Indication: SLEEP DISORDER
  10. PAROXETINE HCL [Concomitant]
     Indication: ANTIDEPRESSANT THERAPY
     Route: 065
  11. IBUPROFEN [Concomitant]
  12. PREDNISONE [Concomitant]
     Route: 065
  13. BENADRYL [Concomitant]
     Indication: PREMEDICATION
     Route: 065
  14. VITAMIN B [Concomitant]
  15. AMBIEN [Concomitant]
     Indication: SLEEP DISORDER
  16. REMICADE [Suspect]
     Indication: RHEUMATOID ARTHRITIS
     Route: 042
  17. LIALDA [Concomitant]

REACTIONS (6)
  - FLUSHING [None]
  - INFUSION RELATED REACTION [None]
  - OEDEMA PERIPHERAL [None]
  - RASH [None]
  - HEART RATE IRREGULAR [None]
  - RESPIRATORY DISORDER [None]
